FAERS Safety Report 11782479 (Version 3)
Quarter: 2015Q4

REPORT INFORMATION
  Report Type: Spontaneous
  Country: BR (occurrence: BR)
  Receive Date: 20151127
  Receipt Date: 20151204
  Transmission Date: 20160305
  Serious: Yes (Death, Hospitalization, Other)
  Sender: FDA-Public Use
  Company Number: BR-ROCHE-1668583

PATIENT
  Age: 57 Year
  Sex: Female

DRUGS (1)
  1. MABTHERA [Suspect]
     Active Substance: RITUXIMAB
     Indication: NON-HODGKIN^S LYMPHOMA
     Route: 042
     Dates: start: 201303

REACTIONS (28)
  - Acute kidney injury [Fatal]
  - Pneumonia [Unknown]
  - Lung neoplasm malignant [Unknown]
  - Hepatic steatosis [Unknown]
  - Liver disorder [Unknown]
  - Sepsis [Fatal]
  - Cough [Unknown]
  - Respiratory failure [Unknown]
  - Pyrexia [Unknown]
  - Nodule [Unknown]
  - Septic shock [Fatal]
  - Bronchiolitis [Fatal]
  - Wheezing [Unknown]
  - Thyroid neoplasm [Unknown]
  - Eschar [Unknown]
  - Drug ineffective [Fatal]
  - Necrosis [Unknown]
  - Glossodynia [Not Recovered/Not Resolved]
  - Ulcer [Recovering/Resolving]
  - Retroperitoneal lymphadenopathy [Unknown]
  - Pancytopenia [Unknown]
  - Bronchiectasis [Unknown]
  - Exfoliative rash [Not Recovered/Not Resolved]
  - Stevens-Johnson syndrome [Fatal]
  - Infection [Fatal]
  - Dyspnoea [Not Recovered/Not Resolved]
  - Lung neoplasm [Unknown]
  - Pain [Unknown]

NARRATIVE: CASE EVENT DATE: 201404
